FAERS Safety Report 8338138-9 (Version None)
Quarter: 2012Q2

REPORT INFORMATION
  Report Type: 
  Country: None (occurrence: None)
  Receive Date: 20120504
  Receipt Date: 20120426
  Transmission Date: 20120825
  Serious: Yes (Hospitalization)
  Sender: FDA-Public Use
  Company Number: US-VERTEX PHARMACEUTICALS INC.-AE-2012-006097

PATIENT
  Sex: Male

DRUGS (3)
  1. INCIVEK [Suspect]
     Indication: HEPATITIS C
     Dates: start: 20111229, end: 20120130
  2. PEGASYS [Concomitant]
     Indication: HEPATITIS C
     Dates: start: 20111229, end: 20120130
  3. RIBAVIRIN [Concomitant]
     Indication: HEPATITIS C
     Dates: start: 20111229, end: 20120130

REACTIONS (3)
  - DIVERTICULITIS [None]
  - CANDIDIASIS [None]
  - POST PROCEDURAL INFECTION [None]
